FAERS Safety Report 9498926 (Version 1)
Quarter: 2013Q3

REPORT INFORMATION
  Report Type: Spontaneous
  Country: GB (occurrence: GB)
  Receive Date: 20130904
  Receipt Date: 20130904
  Transmission Date: 20140515
  Serious: Yes (Hospitalization)
  Sender: FDA-Public Use
  Company Number: GB-ROXANE LABORATORIES, INC.-2013-RO-01471RO

PATIENT
  Age: 85 Year
  Sex: Female

DRUGS (10)
  1. DIGOXIN [Suspect]
  2. FUROSEMIDE [Suspect]
  3. CALCIUM CARBONATE [Suspect]
  4. HYDROXYCHLOROQUINE [Suspect]
  5. WARFARIN [Suspect]
  6. ISOSORBIDE MONONITRATE [Suspect]
  7. RABEPRAZOLE [Suspect]
  8. PREDNISOLONE [Suspect]
  9. FOLIC ACID [Suspect]
  10. CO-DYDRAMOL [Suspect]

REACTIONS (4)
  - Primary hypothyroidism [Unknown]
  - Bradycardia [Unknown]
  - Electrocardiogram QT prolonged [Recovered/Resolved]
  - Torsade de pointes [Unknown]
